FAERS Safety Report 11044475 (Version 1)
Quarter: 2015Q2

REPORT INFORMATION
  Report Type: Spontaneous
  Country: US (occurrence: None)
  Receive Date: 20150416
  Receipt Date: 20150416
  Transmission Date: 20150821
  Serious: No
  Sender: FDA-Public Use
  Company Number: None

PATIENT

DRUGS (2)
  1. HEPARIN SOD. SOLUTION 25,000 UNITS/500 ML HEPARIN SODIUM [Suspect]
     Active Substance: HEPARIN SODIUM
     Dosage: INJECTABLE
  2. DEXTROSE. [Suspect]
     Active Substance: DEXTROSE
     Dosage: INJECTABLE

REACTIONS (1)
  - Product barcode issue [None]
